FAERS Safety Report 5754385-4 (Version None)
Quarter: 2008Q2

REPORT INFORMATION
  Report Type: 
  Country: None (occurrence: None)
  Receive Date: 20080530
  Receipt Date: 20080520
  Transmission Date: 20081010
  Serious: Yes (Other)
  Sender: FDA-Public Use
  Company Number: US-PFIZER INC-2008031742

PATIENT
  Sex: Female

DRUGS (1)
  1. DEPO-MEDROL [Suspect]
     Indication: ALLERGIC SINUSITIS
     Dosage: TEXT:80MG/ML
     Route: 030

REACTIONS (2)
  - CELLULITIS [None]
  - NODULE [None]
